FAERS Safety Report 9160126 (Version 2)
Quarter: 2013Q1

REPORT INFORMATION
  Report Type: Spontaneous
  Country: VE (occurrence: VE)
  Receive Date: 20130313
  Receipt Date: 20130322
  Transmission Date: 20140127
  Serious: Yes (Death)
  Sender: FDA-Public Use
  Company Number: VE-PFIZER INC-2013083507

PATIENT
  Age: 79 Year
  Sex: Male

DRUGS (1)
  1. NORVASC [Suspect]
     Indication: HYPERTENSION
     Dosage: 5 MG, 1X/DAY
     Route: 048

REACTIONS (2)
  - Renal failure [Fatal]
  - Respiratory arrest [Fatal]
